FAERS Safety Report 21754682 (Version 3)
Quarter: 2024Q2

REPORT INFORMATION
  Report Type: Spontaneous
  Country: US (occurrence: US)
  Receive Date: 20221220
  Receipt Date: 20240520
  Transmission Date: 20240716
  Serious: No
  Sender: FDA-Public Use
  Company Number: US-PFIZER INC-PV202200126262

PATIENT
  Age: 71 Year
  Sex: Female

DRUGS (1)
  1. IBRANCE [Suspect]
     Active Substance: PALBOCICLIB
     Dosage: 125 MG

REACTIONS (4)
  - COVID-19 [Unknown]
  - White blood cell count decreased [Unknown]
  - Hair texture abnormal [Unknown]
  - Nail disorder [Unknown]

NARRATIVE: CASE EVENT DATE: 20221201
